FAERS Safety Report 8474022-8 (Version None)
Quarter: 2012Q2

REPORT INFORMATION
  Report Type: 
  Country: None (occurrence: None)
  Receive Date: 20120628
  Receipt Date: 20120405
  Transmission Date: 20120825
  Serious: Yes (Other)
  Sender: FDA-Public Use
  Company Number: US-MYLANLABS-2012S1007246

PATIENT
  Age: 56 Year
  Sex: Male

DRUGS (3)
  1. TAMSULOSIN HCL [Concomitant]
     Route: 048
     Dates: start: 20110901
  2. CLOZAPINE [Suspect]
     Route: 048
     Dates: start: 20101201, end: 20120402
  3. DEPAKOTE ER [Concomitant]
     Route: 048

REACTIONS (1)
  - GRANULOCYTOPENIA [None]
